FAERS Safety Report 8882163 (Version 5)
Quarter: 2013Q3

REPORT INFORMATION
  Report Type: Report from Study
  Country: US (occurrence: US)
  Receive Date: 20121102
  Receipt Date: 20130828
  Transmission Date: 20140515
  Serious: Yes (Hospitalization)
  Sender: FDA-Public Use
  Company Number: US-ELI_LILLY_AND_COMPANY-US201210007240

PATIENT
  Age: 57 Year
  Sex: Female
  Weight: 127.4 kg

DRUGS (19)
  1. TERIPARATIDE [Suspect]
     Indication: OSTEOPOROSIS
     Dosage: 20 UG, QD
     Route: 058
     Dates: start: 20110822
  2. TERIPARATIDE [Suspect]
     Dosage: 20 UG, QD
     Route: 058
     Dates: start: 20110822
  3. TERIPARATIDE [Suspect]
     Dosage: 20 UG, QD
     Route: 058
     Dates: start: 20110822
  4. ALBUTEROL [Concomitant]
  5. ASPIRIN [Concomitant]
     Dosage: 81 MG, UNKNOWN
  6. PULMICORT [Concomitant]
  7. WELLBUTRIN SR [Concomitant]
     Dosage: 150 MG, UNKNOWN
  8. CALCIUM [Concomitant]
     Dosage: 1500 MG, UNKNOWN
  9. TEGRETOL [Concomitant]
     Dosage: 800 MG, QD
  10. DUONEB [Concomitant]
  11. FLONAX [Concomitant]
  12. LASIX [Concomitant]
     Dosage: 20 MG, UNKNOWN
  13. MUCINEX [Concomitant]
     Dosage: 1200 MG, UNKNOWN
  14. MAGNESIUM [Concomitant]
     Dosage: 400 MG, UNKNOWN
  15. MULTIVITAMIN [Concomitant]
  16. OMEGA 3 [Concomitant]
     Dosage: 1200 MG, UNKNOWN
  17. ADVIL                              /00109201/ [Concomitant]
  18. TYLENOL                                 /SCH/ [Concomitant]
  19. VITAMIN D [Concomitant]
     Dosage: 2000 MG, UNKNOWN

REACTIONS (7)
  - Pneumothorax spontaneous [Recovered/Resolved]
  - Urosepsis [Recovered/Resolved]
  - Urinary tract infection [Recovered/Resolved]
  - Incorrect dose administered [Recovered/Resolved]
  - Urinary tract infection [Unknown]
  - Nephrolithiasis [Unknown]
  - Haemochromatosis [Unknown]
